FAERS Safety Report 21435892 (Version 3)
Quarter: 2022Q4

REPORT INFORMATION
  Report Type: Report from Study
  Country: US (occurrence: US)
  Receive Date: 20221010
  Receipt Date: 20221226
  Transmission Date: 20230112
  Serious: Yes (Other)
  Sender: FDA-Public Use
  Company Number: US-ABBVIE-22K-163-4463780-00

PATIENT
  Sex: Female

DRUGS (4)
  1. HUMIRA [Suspect]
     Active Substance: ADALIMUMAB
     Indication: Rheumatoid arthritis
     Dosage: CITRATE FREE
     Route: 058
  2. HUMIRA [Suspect]
     Active Substance: ADALIMUMAB
     Dosage: CITRATE FREE
     Route: 058
  3. JANSSEN COVID-19 VACCINE [Concomitant]
     Active Substance: AD26.COV2.S
     Indication: COVID-19 immunisation
     Dosage: FREQUENCY: ONE TIME ONCE
     Route: 030
  4. MODERNA COVID-19 VACCINE [Concomitant]
     Active Substance: ELASOMERAN
     Indication: COVID-19 immunisation
     Dosage: BOOSTER DOSE; FREQUENCY: ONE TIME ONCE
     Route: 030
     Dates: start: 20220908, end: 20220908

REACTIONS (7)
  - Nasal operation [Recovered/Resolved]
  - Multiple allergies [Recovering/Resolving]
  - Pain [Recovering/Resolving]
  - Post procedural infection [Recovered/Resolved]
  - Post procedural infection [Recovering/Resolving]
  - Tendon injury [Unknown]
  - Skeletal injury [Unknown]
